FAERS Safety Report 5336474-1 (Version None)
Quarter: 2007Q2

REPORT INFORMATION
  Report Type: 
  Country: None (occurrence: None)
  Receive Date: 20070524
  Receipt Date: 20070515
  Transmission Date: 20071010
  Serious: Yes (Life-Threatening)
  Sender: FDA-Public Use
  Company Number: E2020-01215-SPO-AT

PATIENT
  Age: 84 Year
  Sex: Female
  Weight: 52 kg

DRUGS (11)
  1. ARICEPT [Suspect]
     Indication: DEMENTIA
     Dosage: 5 MG, 1 IN 1 D, ORAL
     Route: 048
     Dates: start: 20070126, end: 20070206
  2. SEROQUEL [Suspect]
     Indication: PSYCHOTIC DISORDER
     Dosage: SEE IMAGE
     Route: 048
     Dates: start: 20070122, end: 20070123
  3. SEROQUEL [Suspect]
     Indication: PSYCHOTIC DISORDER
     Dosage: SEE IMAGE
     Route: 048
     Dates: start: 20070124, end: 20070125
  4. SEROQUEL [Suspect]
     Indication: PSYCHOTIC DISORDER
     Dosage: SEE IMAGE
     Route: 048
     Dates: start: 20070126, end: 20070130
  5. FOSAMAX [Concomitant]
  6. DOMINAL (PROTHYPENDYL HYDROCHLORIDE) [Concomitant]
  7. RISPERDAL [Concomitant]
  8. ZOLPIDEM TARTRATE [Concomitant]
  9. KOMBI-KALZ (CALCIUM) [Concomitant]
  10. LAEVILAC (LACTULOSE) [Concomitant]
  11. GALANTAMINE HYDROBROMIDE [Concomitant]

REACTIONS (4)
  - ANOREXIA [None]
  - GASTRITIS [None]
  - HYPONATRAEMIA [None]
  - LEUKOPENIA [None]
